FAERS Safety Report 7828460-4 (Version None)
Quarter: 2011Q4

REPORT INFORMATION
  Report Type: 
  Country: None (occurrence: None)
  Receive Date: 20111020
  Receipt Date: 20111005
  Transmission Date: 20120403
  Serious: Yes (Other)
  Sender: FDA-Public Use
  Company Number: JP-MERCK-1110USA01823

PATIENT
  Age: 65 Year
  Sex: Male

DRUGS (2)
  1. BORTEZOMIB [Suspect]
     Indication: LYMPHOPLASMACYTOID LYMPHOMA/IMMUNOCYTOMA
     Route: 065
  2. DECADRON [Suspect]
     Indication: LYMPHOPLASMACYTOID LYMPHOMA/IMMUNOCYTOMA
     Route: 048

REACTIONS (2)
  - HERPES VIRUS INFECTION [None]
  - NEUROPATHY PERIPHERAL [None]
